FAERS Safety Report 25488013 (Version 1)
Quarter: 2025Q2

REPORT INFORMATION
  Report Type: Spontaneous
  Country: DE (occurrence: DE)
  Receive Date: 20250627
  Receipt Date: 20250627
  Transmission Date: 20250716
  Serious: Yes (Other)
  Sender: AMGEN
  Company Number: DE-AMGEN-DEUSP2025121081

PATIENT
  Age: 46 Year
  Sex: Female

DRUGS (1)
  1. PROLIA [Suspect]
     Active Substance: DENOSUMAB
     Indication: Osteoporosis
     Route: 065

REACTIONS (11)
  - Myocarditis [Unknown]
  - Hypoacusis [Unknown]
  - Tonsillitis [Unknown]
  - Illness [Unknown]
  - Urticaria papular [Unknown]
  - Dyspnoea [Unknown]
  - Rhinorrhoea [Unknown]
  - Arthralgia [Unknown]
  - Muscle spasms [Unknown]
  - Myalgia [Unknown]
  - Infection [Unknown]
